FAERS Safety Report 4721646-7 (Version None)
Quarter: 2005Q3

REPORT INFORMATION
  Report Type: 
  Country: None (occurrence: None)
  Receive Date: 20050721
  Receipt Date: 20050201
  Transmission Date: 20060218
  Serious: No
  Sender: FDA-Public Use
  Company Number: US-BRISTOL-MYERS SQUIBB COMPANY-12844742

PATIENT
  Age: 72 Year
  Sex: Female
  Weight: 66 kg

DRUGS (3)
  1. COUMADIN [Suspect]
     Dates: start: 20040701
  2. PROCARDIA [Concomitant]
  3. VASOTEC RPD [Concomitant]

REACTIONS (3)
  - DYSGEUSIA [None]
  - DYSURIA [None]
  - URINARY TRACT INFECTION [None]
